FAERS Safety Report 8807425 (Version 1)
Quarter: 2012Q4

REPORT INFORMATION
  Report Type: 
  Country: DE (occurrence: DE)
  Receive Date: 20120925
  Receipt Date: 20120925
  Transmission Date: 20130627
  Serious: Yes (Congenital Anomaly, Other)
  Sender: FDA-Public Use
  Company Number: DE-TEVA-359108GER

PATIENT
  Age: 0 Year
  Sex: Male
  Weight: 2.88 kg

DRUGS (3)
  1. COPAXONE [Suspect]
     Route: 064
     Dates: start: 20110820, end: 20120520
  2. ALPHA-VIBOLEX [Concomitant]
     Route: 064
     Dates: start: 20110820, end: 20120520
  3. FOLIC ACID [Concomitant]
     Route: 064
     Dates: start: 20110820, end: 20120520

REACTIONS (2)
  - Small for dates baby [Unknown]
  - Poland^s syndrome [Not Recovered/Not Resolved]
